FAERS Safety Report 5091718-9 (Version None)
Quarter: 2006Q3

REPORT INFORMATION
  Report Type: 
  Country: None (occurrence: None)
  Receive Date: 20060824
  Receipt Date: 20060808
  Transmission Date: 20061208
  Serious: Yes (Hospitalization, Disabling)
  Sender: FDA-Public Use
  Company Number: 8018370

PATIENT
  Age: 83 Year
  Sex: Female

DRUGS (6)
  1. PREDNISOLONE [Suspect]
     Indication: OPTIC ISCHAEMIC NEUROPATHY
     Dosage: 5 MG 1/2D
  2. PREDNISOLONE [Suspect]
     Indication: POLYMYALGIA RHEUMATICA
     Dosage: 5 MG 1/2D
  3. PREDNISOLONE [Suspect]
     Indication: MYALGIA
     Dosage: 80 MG/D
  4. PREDNISOLONE [Suspect]
     Indication: OPTIC ISCHAEMIC NEUROPATHY
     Dosage: 80 MG/D
  5. URSODEOXYCHOLIC ACID [Concomitant]
  6. FELODIPINE [Concomitant]

REACTIONS (8)
  - BLINDNESS UNILATERAL [None]
  - CORNEAL LIGHT REFLEX TEST NORMAL [None]
  - CORNEAL REFLEX DECREASED [None]
  - EXOPHTHALMOS [None]
  - EYELID PTOSIS [None]
  - OPTIC ISCHAEMIC NEUROPATHY [None]
  - PUPILLARY REFLEX IMPAIRED [None]
  - SINUSITIS ASPERGILLUS [None]
